FAERS Safety Report 20540663 (Version 5)
Quarter: 2024Q2

REPORT INFORMATION
  Report Type: Spontaneous
  Country: US (occurrence: US)
  Receive Date: 20220302
  Receipt Date: 20240508
  Transmission Date: 20240715
  Serious: Yes (Hospitalization, Other)
  Sender: FDA-Public Use
  Company Number: US-PFIZER INC-2021643050

PATIENT
  Age: 74 Year
  Sex: Female
  Weight: 104.3 kg

DRUGS (1)
  1. IBRANCE [Suspect]
     Active Substance: PALBOCICLIB
     Dosage: 125 MG

REACTIONS (5)
  - Cough [Unknown]
  - Pneumonia [Recovering/Resolving]
  - Nephrolithiasis [Unknown]
  - Vomiting [Unknown]
  - Product dose omission issue [Unknown]
